FAERS Safety Report 10547738 (Version 1)
Quarter: 2014Q4

REPORT INFORMATION
  Report Type: Spontaneous
  Country: US (occurrence: None)
  Receive Date: 20141015
  Receipt Date: 20141015
  Transmission Date: 20150529
  Serious: No
  Sender: FDA-Public Use
  Company Number: 2013US003529

PATIENT
  Sex: Female

DRUGS (1)
  1. ICLUSIG [Suspect]
     Active Substance: PONATINIB

REACTIONS (1)
  - No adverse event [None]
